FAERS Safety Report 8267604-X (Version None)
Quarter: 2012Q2

REPORT INFORMATION
  Report Type: 
  Country: None (occurrence: None)
  Receive Date: 20120409
  Receipt Date: 20120330
  Transmission Date: 20120825
  Serious: Yes (Other)
  Sender: FDA-Public Use
  Company Number: US-GENZYME-HECT-1000186

PATIENT

DRUGS (1)
  1. HECTOROL [Suspect]
     Indication: HYPERPARATHYROIDISM SECONDARY
     Dosage: 1 MCG, UNK
     Route: 042
     Dates: start: 20110804

REACTIONS (3)
  - PANCREATITIS ACUTE [None]
  - AUTOIMMUNE DISORDER [None]
  - INFLAMMATION [None]
